FAERS Safety Report 21299274 (Version 1)
Quarter: 2022Q3

REPORT INFORMATION
  Report Type: Spontaneous
  Country: US (occurrence: None)
  Receive Date: 20220906
  Receipt Date: 20220906
  Transmission Date: 20221027
  Serious: No
  Sender: FDA-Public Use
  Company Number: None

PATIENT

DRUGS (2)
  1. KEDRAB [Suspect]
     Active Substance: HUMAN RABIES VIRUS IMMUNE GLOBULIN
     Dosage: OTHER STRENGTH : 150IU/ML;?
  2. KEDRAB [Suspect]
     Active Substance: HUMAN RABIES VIRUS IMMUNE GLOBULIN
     Dosage: OTHER STRENGTH : 150IU/ML;?

REACTIONS (2)
  - Product barcode issue [None]
  - Product label issue [None]
